FAERS Safety Report 21376360 (Version 3)
Quarter: 2022Q4

REPORT INFORMATION
  Report Type: Spontaneous
  Country: DE (occurrence: DE)
  Receive Date: 20220926
  Receipt Date: 20221220
  Transmission Date: 20230113
  Serious: Yes (Other)
  Sender: FDA-Public Use
  Company Number: DE-NOVARTISPH-NVSC2022DE216504

PATIENT
  Age: 26 Year
  Sex: Female

DRUGS (1)
  1. ETANERCEPT [Suspect]
     Active Substance: ETANERCEPT
     Indication: Iridocyclitis
     Dosage: UNK
     Route: 065

REACTIONS (2)
  - Iridocyclitis [Unknown]
  - Product use in unapproved indication [Unknown]
